FAERS Safety Report 7784506-3 (Version None)
Quarter: 2011Q3

REPORT INFORMATION
  Report Type: 
  Country: None (occurrence: None)
  Receive Date: 20110928
  Receipt Date: 20110919
  Transmission Date: 20111222
  Serious: Yes (Other)
  Sender: FDA-Public Use
  Company Number: US-SANOFI-AVENTIS-2011SA061920

PATIENT
  Age: 58 Year
  Sex: Female

DRUGS (4)
  1. HUMALOG [Concomitant]
     Dosage: 15 UNITS AT BREAKFAST, 10 UNITS AT LUNCH AND 15 UNITS AT DINNER
     Route: 058
     Dates: start: 20100501
  2. LANTUS [Suspect]
     Indication: TYPE 2 DIABETES MELLITUS
     Dosage: IN THE EVENING DOSE:30 UNIT(S)
     Route: 058
     Dates: start: 20100501
  3. METFORMIN HCL [Concomitant]
     Dates: start: 20100501
  4. LANTUS [Suspect]

REACTIONS (2)
  - BLOOD GLUCOSE INCREASED [None]
  - CARDIAC OPERATION [None]
